FAERS Safety Report 9070257 (Version 6)
Quarter: 2014Q2

REPORT INFORMATION
  Report Type: Report from Study
  Country: US (occurrence: US)
  Receive Date: 20130215
  Receipt Date: 20140408
  Transmission Date: 20141212
  Serious: Yes (Hospitalization, Other)
  Sender: FDA-Public Use
  Company Number: US-ROCHE-1076161

PATIENT
  Age: 29 Year
  Sex: Female

DRUGS (16)
  1. OMALIZUMAB [Suspect]
     Indication: ASTHMA
     Route: 058
     Dates: start: 20110520, end: 20120503
  2. OMALIZUMAB [Suspect]
     Route: 058
     Dates: start: 20120806
  3. OMALIZUMAB [Suspect]
     Route: 058
     Dates: start: 20120827
  4. OMALIZUMAB [Suspect]
     Route: 058
     Dates: start: 20120404
  5. SINGULAIR [Concomitant]
     Indication: ASTHMA
  6. XYZAL [Concomitant]
     Indication: HYPERSENSITIVITY
  7. NEXIUM [Concomitant]
     Indication: GASTROOESOPHAGEAL REFLUX DISEASE
     Route: 048
  8. SPIRIVA [Concomitant]
     Indication: ASTHMA
  9. DULERA [Concomitant]
     Indication: ASTHMA
  10. TYLENOL [Concomitant]
     Indication: PAIN
  11. TUMS [Concomitant]
     Indication: DYSPEPSIA
  12. NORETHINDRONE [Concomitant]
     Dosage: FOR INDUCE MENSTRUATION
     Route: 065
  13. CLOMID [Concomitant]
  14. SYMBICORT [Concomitant]
     Indication: ASTHMA
  15. ZYRTEC [Concomitant]
     Indication: HYPERSENSITIVITY
  16. ALBUTEROL INHALER [Concomitant]
     Indication: ASTHMA

REACTIONS (3)
  - Cephalo-pelvic disproportion [Recovered/Resolved]
  - Anaemia [Unknown]
  - Exposure during pregnancy [Unknown]
